FAERS Safety Report 5408691-3 (Version None)
Quarter: 2007Q3

REPORT INFORMATION
  Report Type: 
  Country: None (occurrence: None)
  Receive Date: 20070808
  Receipt Date: 20070802
  Transmission Date: 20080115
  Serious: Yes (Other)
  Sender: FDA-Public Use
  Company Number: A0667889A

PATIENT
  Age: 46 Year
  Sex: Female

DRUGS (2)
  1. PAXIL [Suspect]
     Indication: ANXIETY DISORDER
     Dosage: 20MG PER DAY
     Route: 048
     Dates: end: 20060101
  2. ZIAC [Concomitant]

REACTIONS (11)
  - AMENORRHOEA [None]
  - DEPRESSION [None]
  - FALL [None]
  - HYPERTENSION [None]
  - INSOMNIA [None]
  - JOB DISSATISFACTION [None]
  - MUSCULAR WEAKNESS [None]
  - PALPITATIONS [None]
  - PANIC ATTACK [None]
  - SOMNOLENCE [None]
  - SUICIDAL IDEATION [None]
